FAERS Safety Report 20123822 (Version 1)
Quarter: 2021Q4

REPORT INFORMATION
  Report Type: Spontaneous
  Country: US (occurrence: US)
  Receive Date: 20211129
  Receipt Date: 20211129
  Transmission Date: 20220303
  Serious: No
  Sender: FDA-Public Use
  Company Number: US-UCBSA-2021024819

PATIENT
  Age: 5 Year
  Sex: Female

DRUGS (2)
  1. LACOSAMIDE [Suspect]
     Active Substance: LACOSAMIDE
     Indication: Partial seizures
     Dosage: UNKNOWN DOSE
  2. OXCARBAZEPINE [Suspect]
     Active Substance: OXCARBAZEPINE
     Indication: Partial seizures
     Dosage: UNKNOWN DOSE

REACTIONS (1)
  - Drug ineffective [Unknown]
